FAERS Safety Report 11894375 (Version 1)
Quarter: 2016Q1

REPORT INFORMATION
  Report Type: Spontaneous
  Country: US (occurrence: None)
  Receive Date: 20160106
  Receipt Date: 20160106
  Transmission Date: 20160526
  Serious: Yes (Hospitalization)
  Sender: FDA-Public Use
  Company Number: None

PATIENT
  Age: 39 Year
  Sex: Male
  Weight: 93.3 kg

DRUGS (6)
  1. CYTARABINE. [Suspect]
     Active Substance: CYTARABINE
     Dates: end: 20151121
  2. VINCRISTINE SULFATE. [Suspect]
     Active Substance: VINCRISTINE SULFATE
     Dates: end: 20151212
  3. ONCASPAR [Suspect]
     Active Substance: PEGASPARGASE
     Dates: end: 20151208
  4. DAUNORUBICIN [Suspect]
     Active Substance: DAUNORUBICIN
     Dates: end: 20151212
  5. DEXAMETHASONE. [Suspect]
     Active Substance: DEXAMETHASONE
     Dates: end: 20151211
  6. METHOTREXATE [Suspect]
     Active Substance: METHOTREXATE
     Dates: end: 20151204

REACTIONS (2)
  - Staphylococcus test positive [None]
  - Febrile neutropenia [None]

NARRATIVE: CASE EVENT DATE: 20151224
